FAERS Safety Report 6486479-2 (Version None)
Quarter: 2009Q4

REPORT INFORMATION
  Report Type: 
  Country: None (occurrence: None)
  Receive Date: 20091210
  Receipt Date: 20091130
  Transmission Date: 20100525
  Serious: Yes (Hospitalization)
  Sender: FDA-Public Use
  Company Number: US-JNJFOC-20091200493

PATIENT
  Sex: Female
  Weight: 61 kg

DRUGS (4)
  1. DOXIL [Suspect]
     Route: 042
  2. DOXIL [Suspect]
     Indication: DIFFUSE LARGE B-CELL LYMPHOMA
     Route: 042
  3. PEGASPARGASE [Suspect]
     Dosage: CYCLE 2, 2500 IU/M2
     Route: 042
  4. PEGASPARGASE [Suspect]
     Indication: DIFFUSE LARGE B-CELL LYMPHOMA
     Dosage: CYCLE 1, 2500 IU/M2
     Route: 042

REACTIONS (12)
  - ASTHENIA [None]
  - BLOOD CALCIUM DECREASED [None]
  - BLOOD SODIUM DECREASED [None]
  - DECREASED APPETITE [None]
  - DEHYDRATION [None]
  - DIFFUSE LARGE B-CELL LYMPHOMA [None]
  - DIZZINESS [None]
  - FAILURE TO THRIVE [None]
  - FALL [None]
  - HAEMOGLOBIN DECREASED [None]
  - OFF LABEL USE [None]
  - PLATELET COUNT DECREASED [None]
